FAERS Safety Report 4976911-5 (Version None)
Quarter: 2006Q2

REPORT INFORMATION
  Report Type: 
  Country: None (occurrence: None)
  Receive Date: 20060413
  Receipt Date: 20060405
  Transmission Date: 20061013
  Serious: Yes (Disabling, Other)
  Sender: FDA-Public Use
  Company Number: A017372

PATIENT
  Age: 58 Year
  Sex: Male
  Weight: 81.6475 kg

DRUGS (3)
  1. LIPITOR [Suspect]
     Indication: ILL-DEFINED DISORDER
     Dates: start: 19970101
  2. VIBRA-TABS [Suspect]
     Indication: LYME DISEASE
     Dosage: 200 MG (100 MG, 2 IN 1 D)
     Dates: start: 20000508
  3. BACLOFEN [Concomitant]

REACTIONS (5)
  - AMYOTROPHIC LATERAL SCLEROSIS [None]
  - FATIGUE [None]
  - HEAD INJURY [None]
  - LYME DISEASE [None]
  - ROAD TRAFFIC ACCIDENT [None]
